FAERS Safety Report 9505351 (Version 1)
Quarter: 2013Q1

REPORT INFORMATION
  Report Type: Spontaneous
  Country: US (occurrence: None)
  Receive Date: 20130220
  Receipt Date: 20130220
  Transmission Date: 20140127
  Serious: No
  Sender: FDA-Public Use
  Company Number: 1000041838

PATIENT
  Age: 56 Year
  Sex: Male

DRUGS (8)
  1. VIIBRYD (VILAZODONE HYDROCHLORIDE) [Suspect]
     Indication: DEPRESSION
     Dosage: ( 40MG, 1 IN 1 D)
     Route: 048
     Dates: start: 20120912
  2. LIPITOR (ATORVASTATIN CALCIUM) [Suspect]
  3. BUSPAR (BUSPIRONE HYDROCHLORIDE) (BUSPIRONE HYDROCHLORIDE) [Concomitant]
  4. GLIPIZIDE (GLIPIZIDE) [Concomitant]
  5. AMLODIPINE (AMLODIPINE) [Concomitant]
  6. LORAZEPAM (LORAZEPAM) [Concomitant]
  7. CIALIS (TADALAFIL) [Concomitant]
  8. BENAZEPRIL (BENAZEPRIL) [Concomitant]

REACTIONS (1)
  - Myalgia [None]
